FAERS Safety Report 4342009-2 (Version None)
Quarter: 2004Q1

REPORT INFORMATION
  Report Type: 
  Country: None (occurrence: None)
  Receive Date: 20040329
  Receipt Date: 20031211
  Transmission Date: 20041129
  Serious: No
  Sender: FDA-Public Use
  Company Number: 03P-163-0244332-00

PATIENT
  Sex: Female

DRUGS (21)
  1. HUMIRA [Suspect]
     Indication: RHEUMATOID ARTHRITIS
     Dosage: 40 MG, 1 IN 2 WK, SUBCUTANEOUS
     Route: 058
     Dates: start: 20031023
  2. METHOTREXATE [Concomitant]
  3. DISALADE [Concomitant]
  4. PREDNISONE [Concomitant]
  5. TOLTERODINE TARTRATE [Concomitant]
  6. COLCHICINE [Concomitant]
  7. FOLIC ACID [Concomitant]
  8. PAROXETINE HCL [Concomitant]
  9. AMLODIPINE BESYLATE [Concomitant]
  10. ACETAMINOPHEN W/ CODEINE [Concomitant]
  11. NITROFURANTOIN [Concomitant]
  12. TOCOPHEROL CONCENTRATE CAP [Concomitant]
  13. MULTI-VITAMINS [Concomitant]
  14. MULTI-VITAMINS [Concomitant]
  15. ASCORBIC ACID [Concomitant]
  16. CTRACAL + D [Concomitant]
  17. CYCLOBENZAPRINE HYDROCHLORIDE [Concomitant]
  18. GARLIC [Concomitant]
  19. FISH OIL [Concomitant]
  20. ESOMEPRAZOLE [Concomitant]
  21. RISENDRONATE SODIUM [Concomitant]

REACTIONS (1)
  - INJECTION SITE PAIN [None]
